FAERS Safety Report 14499738 (Version 2)
Quarter: 2018Q1

REPORT INFORMATION
  Report Type: Spontaneous
  Country: US (occurrence: US)
  Receive Date: 20180207
  Receipt Date: 20180301
  Transmission Date: 20180509
  Serious: No
  Sender: FDA-Public Use
  Company Number: US-GLAXOSMITHKLINE-US2018018538

PATIENT
  Sex: Female

DRUGS (1)
  1. VENTOLIN HFA [Suspect]
     Active Substance: ALBUTEROL SULFATE
     Indication: DYSPNOEA
     Dosage: 2 PUFF(S), ORALLY EVERY 4 HOURS PRN
     Dates: start: 20180104, end: 20180131

REACTIONS (4)
  - Wrong technique in device usage process [Unknown]
  - Device damage [Unknown]
  - Intentional device misuse [Unknown]
  - Device deployment issue [Unknown]
